FAERS Safety Report 9912567 (Version 1)
Quarter: 2014Q1

REPORT INFORMATION
  Report Type: Spontaneous
  Country: US (occurrence: None)
  Receive Date: 20140218
  Receipt Date: 20140218
  Transmission Date: 20141002
  Serious: Yes (Other)
  Sender: FDA-Public Use
  Company Number: None

PATIENT
  Age: 51 Year
  Sex: Female
  Weight: 73 kg

DRUGS (4)
  1. SAVELLA [Suspect]
     Indication: PAIN
     Dates: start: 20140204, end: 20140214
  2. SAVELLA [Suspect]
     Indication: MUSCULOSKELETAL PAIN
     Dates: start: 20140204, end: 20140214
  3. ADDERALL XR [Concomitant]
  4. LEVOTHYROXINE [Concomitant]

REACTIONS (3)
  - Blood pressure systolic increased [None]
  - Blood pressure diastolic increased [None]
  - Tachycardia [None]
